FAERS Safety Report 11678637 (Version 2)
Quarter: 2016Q1

REPORT INFORMATION
  Report Type: Spontaneous
  Country: US (occurrence: US)
  Receive Date: 20151028
  Receipt Date: 20160202
  Transmission Date: 20160525
  Serious: No
  Sender: FDA-Public Use
  Company Number: US-IMPAX LABORATORIES, INC-2015-IPXL-00798

PATIENT
  Age: 79 Year
  Sex: Female

DRUGS (1)
  1. RYTARY [Suspect]
     Active Substance: CARBIDOPA\LEVODOPA
     Indication: PARKINSON^S DISEASE
     Dosage: 6 CAPSULES PER DAY
     Route: 048

REACTIONS (3)
  - Underdose [Recovered/Resolved]
  - Freezing phenomenon [Recovered/Resolved]
  - Psychomotor hyperactivity [Recovered/Resolved]
